FAERS Safety Report 15473792 (Version 2)
Quarter: 2018Q4

REPORT INFORMATION
  Report Type: Spontaneous
  Country: US (occurrence: US)
  Receive Date: 20181008
  Receipt Date: 20181018
  Transmission Date: 20190205
  Serious: No
  Sender: FDA-Public Use
  Company Number: US-009507513-1810USA002251

PATIENT
  Age: 16 Year
  Sex: Female
  Weight: 76.64 kg

DRUGS (1)
  1. NEXPLANON [Suspect]
     Active Substance: ETONOGESTREL
     Indication: CONTRACEPTION
     Dosage: 1 DF: FREQUENCY EVERY 3 YEARS
     Route: 059
     Dates: start: 20160707, end: 20181002

REACTIONS (4)
  - Menstruation irregular [Recovered/Resolved]
  - Affect lability [Recovered/Resolved]
  - Pain in extremity [Unknown]
  - Device kink [Recovered/Resolved]

NARRATIVE: CASE EVENT DATE: 20180925
